FAERS Safety Report 13298053 (Version 3)
Quarter: 2017Q1

REPORT INFORMATION
  Report Type: Report from Study
  Country: US (occurrence: US)
  Receive Date: 20170306
  Receipt Date: 20170314
  Transmission Date: 20170428
  Serious: Yes (Hospitalization, Other)
  Sender: FDA-Public Use
  Company Number: US-009507513-1703USA001761

PATIENT
  Age: 68 Year
  Sex: Male

DRUGS (1)
  1. KEYTRUDA [Suspect]
     Active Substance: PEMBROLIZUMAB
     Indication: PLASMA CELL MYELOMA
     Dosage: 200 MG EVERY 3 WEEKS
     Route: 042
     Dates: start: 20160913, end: 20161223

REACTIONS (6)
  - Respiratory distress [Unknown]
  - Hypotension [Unknown]
  - Disease susceptibility [Unknown]
  - Malignant neoplasm progression [Not Recovered/Not Resolved]
  - Product use issue [Unknown]
  - Drug dose omission [Unknown]

NARRATIVE: CASE EVENT DATE: 20160913
